FAERS Safety Report 15906691 (Version 1)
Quarter: 2019Q1

REPORT INFORMATION
  Report Type: Spontaneous
  Country: US (occurrence: US)
  Receive Date: 20190204
  Receipt Date: 20190204
  Transmission Date: 20190417
  Serious: Yes (Other)
  Sender: FDA-Public Use
  Company Number: None

PATIENT
  Age: 42 Year
  Sex: Female
  Weight: 65.25 kg

DRUGS (10)
  1. PROZAC [Concomitant]
     Active Substance: FLUOXETINE HYDROCHLORIDE
  2. MULTIVITAMIN [Concomitant]
     Active Substance: VITAMINS
  3. AIMOVIG [Suspect]
     Active Substance: ERENUMAB-AOOE
     Indication: MIGRAINE
     Dosage: ?          OTHER STRENGTH:SQ PEN INJECTION;OTHER FREQUENCY:ONCE A MONTH;?
     Route: 058
     Dates: start: 20190118
  4. MIGRANAL [Concomitant]
     Active Substance: DIHYDROERGOTAMINE MESYLATE
  5. TOPAMAX [Concomitant]
     Active Substance: TOPIRAMATE
  6. CALCIUM [Concomitant]
     Active Substance: CALCIUM
  7. VITAMIN D [Concomitant]
     Active Substance: CHOLECALCIFEROL
  8. VERAPAMIL [Concomitant]
     Active Substance: VERAPAMIL HYDROCHLORIDE
  9. MAGNESIUM [Concomitant]
     Active Substance: MAGNESIUM
  10. AMATRYPTILINE [Concomitant]

REACTIONS (6)
  - Symptom recurrence [None]
  - Pruritus generalised [None]
  - Dizziness [None]
  - Urticaria [None]
  - Cerebrovascular accident [None]
  - Tinnitus [None]

NARRATIVE: CASE EVENT DATE: 20190121
